FAERS Safety Report 19690670 (Version 1)
Quarter: 2021Q3

REPORT INFORMATION
  Report Type: Spontaneous
  Country: US (occurrence: US)
  Receive Date: 20210812
  Receipt Date: 20210812
  Transmission Date: 20211014
  Serious: No
  Sender: FDA-Public Use
  Company Number: US-GLENMARK PHARMACEUTICALS-2021GMK053176

PATIENT
  Sex: Female

DRUGS (2)
  1. TELMISARTAN TABLETS USP, 80 MG [Suspect]
     Active Substance: TELMISARTAN
     Indication: HYPERTENSION
     Dosage: 1 DOSAGE FORM
     Route: 065
  2. TELMISARTAN TABLETS USP, 80 MG [Suspect]
     Active Substance: TELMISARTAN
     Dosage: 0.5 DOSAGE FORM, QD
     Route: 065

REACTIONS (3)
  - Hypotension [Unknown]
  - Wrong technique in product usage process [Unknown]
  - Dizziness [Unknown]
